FAERS Safety Report 16991843 (Version 4)
Quarter: 2020Q3

REPORT INFORMATION
  Report Type: Spontaneous
  Country: US (occurrence: US)
  Receive Date: 20191104
  Receipt Date: 20200707
  Transmission Date: 20201102
  Serious: No
  Sender: FDA-Public Use
  Company Number: US-BIOGEN-2019BI00803198

PATIENT
  Age: 37 Year
  Sex: Female
  Weight: 86.26 kg

DRUGS (2)
  1. TECFIDERA [Suspect]
     Active Substance: DIMETHYL FUMARATE
     Indication: MULTIPLE SCLEROSIS
     Route: 065
     Dates: start: 20170420
  2. TECFIDERA [Suspect]
     Active Substance: DIMETHYL FUMARATE
     Route: 048
     Dates: start: 201703, end: 20191202

REACTIONS (13)
  - Feeling abnormal [Unknown]
  - Myalgia [Unknown]
  - Nausea [Unknown]
  - Illness [Unknown]
  - Balance disorder [Unknown]
  - Vomiting [Not Recovered/Not Resolved]
  - Blood pressure increased [Unknown]
  - Back pain [Unknown]
  - Pain [Unknown]
  - Arthralgia [Unknown]
  - Headache [Unknown]
  - Urticaria [Unknown]
  - Neck pain [Unknown]

NARRATIVE: CASE EVENT DATE: 201704
